FAERS Safety Report 7094693-0 (Version None)
Quarter: 2010Q4

REPORT INFORMATION
  Report Type: 
  Country: None (occurrence: None)
  Receive Date: 20101110
  Receipt Date: 20090120
  Transmission Date: 20110411
  Serious: No
  Sender: FDA-Public Use
  Company Number: US-KINGPHARMUSA00001-K200900064

PATIENT

DRUGS (1)
  1. NEOSPORIN [Suspect]

REACTIONS (1)
  - RASH [None]
